FAERS Safety Report 19037881 (Version 1)
Quarter: 2021Q1

REPORT INFORMATION
  Report Type: Spontaneous
  Country: US (occurrence: US)
  Receive Date: 20210322
  Receipt Date: 20210322
  Transmission Date: 20210420
  Serious: Yes (Other)
  Sender: FDA-Public Use
  Company Number: None

PATIENT
  Age: 54 Year
  Sex: Male
  Weight: 89.2 kg

DRUGS (11)
  1. METOPROLOL. [Concomitant]
     Active Substance: METOPROLOL
  2. FENTANYL TRANSDERMAL SYSTEM [Concomitant]
     Active Substance: FENTANYL
  3. GABAPENTIN. [Concomitant]
     Active Substance: GABAPENTIN
  4. IBUPROFEN. [Concomitant]
     Active Substance: IBUPROFEN
  5. OXYCODONE [Concomitant]
     Active Substance: OXYCODONE
  6. SULFAMETHOXAZOLE?TRIMETHOPRIM [Concomitant]
     Active Substance: SULFAMETHOXAZOLE\TRIMETHOPRIM
  7. CARISOPRODOL. [Concomitant]
     Active Substance: CARISOPRODOL
  8. VANCOMYCIN [Suspect]
     Active Substance: VANCOMYCIN
     Indication: INFECTION PROPHYLAXIS
     Dosage: ?          OTHER FREQUENCY:ONCE;?
     Route: 042
  9. AMLODIPINE [Concomitant]
     Active Substance: AMLODIPINE BESYLATE
  10. VITAMIN D2 [Concomitant]
     Active Substance: ERGOCALCIFEROL
  11. LIDOCAINE PATCH [Concomitant]
     Active Substance: LIDOCAINE

REACTIONS (2)
  - Dyspnoea [None]
  - Rash [None]
